FAERS Safety Report 23865431 (Version 2)
Quarter: 2025Q1

REPORT INFORMATION
  Report Type: Spontaneous
  Country: US (occurrence: US)
  Receive Date: 20240517
  Receipt Date: 20250128
  Transmission Date: 20250409
  Serious: No
  Sender: Tarsus Pharmaceuticals
  Company Number: US-TARSUS PHARMACEUTICALS-TSP-US-2024-000099

PATIENT
  Age: 65 Year
  Sex: Female

DRUGS (3)
  1. XDEMVY [Suspect]
     Active Substance: LOTILANER
     Indication: Arthropod infestation
     Route: 047
  2. XDEMVY [Suspect]
     Active Substance: LOTILANER
     Route: 047
  3. XDEMVY [Suspect]
     Active Substance: LOTILANER
     Route: 047

REACTIONS (7)
  - Vision blurred [Not Recovered/Not Resolved]
  - Accidental exposure to product [Unknown]
  - Incorrect dose administered [Unknown]
  - Product lot number issue [Unknown]
  - Device breakage [Unknown]
  - Device leakage [Unknown]
  - Product expiration date issue [Unknown]
